FAERS Safety Report 5972525-9 (Version None)
Quarter: 2008Q4

REPORT INFORMATION
  Report Type: 
  Country: None (occurrence: None)
  Receive Date: 20081201
  Receipt Date: 20081117
  Transmission Date: 20090506
  Serious: Yes (Death)
  Sender: FDA-Public Use
  Company Number: B0545060A

PATIENT
  Age: 67 Year
  Sex: Female

DRUGS (3)
  1. AUGMENTIN '125' [Suspect]
     Indication: UPPER RESPIRATORY TRACT INFECTION
     Dosage: 2G PER DAY
     Route: 048
     Dates: start: 20081017, end: 20081017
  2. NITROGLYCERIN [Concomitant]
     Route: 065
  3. ANTIDIABETIC [Concomitant]
     Route: 065

REACTIONS (5)
  - DEATH [None]
  - DYSPNOEA [None]
  - ERYTHEMA [None]
  - FACE OEDEMA [None]
  - LARYNGEAL OEDEMA [None]
